FAERS Safety Report 10267866 (Version 1)
Quarter: 2014Q2

REPORT INFORMATION
  Report Type: Other
  Country: GB (occurrence: GB)
  Receive Date: 20140630
  Receipt Date: 20140630
  Transmission Date: 20141212
  Serious: Yes (Life-Threatening, Other)
  Sender: FDA-Public Use
  Company Number: GB-GLENMARK GENERICS INC.-2014GMK010019

PATIENT
  Age: 55 Year
  Sex: Male
  Weight: 52 kg

DRUGS (3)
  1. TOPIRAMATE [Suspect]
     Indication: MIGRAINE PROPHYLAXIS
     Dosage: 25 MG, QD
     Route: 048
     Dates: start: 20140612, end: 20140613
  2. SUMATRIPTAN [Concomitant]
     Indication: PRODUCT USED FOR UNKNOWN INDICATION
     Dosage: UNK
  3. TERBINAFINE [Concomitant]
     Indication: PRODUCT USED FOR UNKNOWN INDICATION
     Dosage: UNK

REACTIONS (1)
  - Acute myocardial infarction [Recovered/Resolved with Sequelae]
